FAERS Safety Report 21533182 (Version 3)
Quarter: 2023Q1

REPORT INFORMATION
  Report Type: Report from Study
  Country: US (occurrence: US)
  Receive Date: 20221101
  Receipt Date: 20230116
  Transmission Date: 20230417
  Serious: No
  Sender: FDA-Public Use
  Company Number: US-ABBVIE-4181642

PATIENT
  Sex: Male

DRUGS (2)
  1. IMBRUVICA [Suspect]
     Active Substance: IBRUTINIB
     Indication: Chronic lymphocytic leukaemia
     Dosage: TIME INTERVAL: 0.33333333 DAYS: 420 MILLIGRAM
     Route: 048
     Dates: start: 20221007, end: 20221203
  2. IMBRUVICA [Suspect]
     Active Substance: IBRUTINIB
     Indication: Chronic lymphocytic leukaemia
     Dosage: 280 MILLIGRAM
     Route: 048

REACTIONS (6)
  - Crohn^s disease [Unknown]
  - Pain in jaw [Unknown]
  - Muscle tightness [Unknown]
  - Photopsia [Unknown]
  - Arthralgia [Recovering/Resolving]
  - Headache [Unknown]
